FAERS Safety Report 8071281-0 (Version None)
Quarter: 2012Q1

REPORT INFORMATION
  Report Type: 
  Country: None (occurrence: None)
  Receive Date: 20120125
  Receipt Date: 20120123
  Transmission Date: 20120608
  Serious: Yes (Other)
  Sender: FDA-Public Use
  Company Number: US-JNJFOC-20120109646

PATIENT
  Sex: Female
  Weight: 93.9 kg

DRUGS (2)
  1. LEVAQUIN [Suspect]
     Indication: BRONCHITIS CHRONIC
     Route: 048
     Dates: start: 20111001, end: 20111001
  2. LEVAQUIN [Suspect]
     Route: 048
     Dates: start: 20120107, end: 20120114

REACTIONS (6)
  - JOINT SWELLING [None]
  - SKIN DISCOLOURATION [None]
  - ARTHRALGIA [None]
  - NERVE COMPRESSION [None]
  - OEDEMA PERIPHERAL [None]
  - HYPOAESTHESIA [None]
